FAERS Safety Report 8155120-5 (Version None)
Quarter: 2012Q1

REPORT INFORMATION
  Report Type: 
  Country: None (occurrence: None)
  Receive Date: 20120221
  Receipt Date: 20120213
  Transmission Date: 20120608
  Serious: Yes (Hospitalization)
  Sender: FDA-Public Use
  Company Number: FR-ROCHE-1039808

PATIENT
  Sex: Male

DRUGS (4)
  1. VALIUM [Suspect]
     Indication: ANXIETY
     Route: 048
     Dates: start: 20120115
  2. PAROXETINE HYDROCHLORIDE [Suspect]
     Indication: ANXIETY
     Route: 048
     Dates: start: 20120114
  3. SEROQUEL [Suspect]
     Indication: PSYCHOTIC DISORDER
     Route: 048
     Dates: start: 20120114, end: 20120114
  4. NOCTAMIDE [Suspect]
     Indication: INSOMNIA
     Route: 048
     Dates: start: 20120114

REACTIONS (2)
  - ORTHOSTATIC HYPOTENSION [None]
  - FALL [None]
